FAERS Safety Report 5366542-X (Version None)
Quarter: 2007Q2

REPORT INFORMATION
  Report Type: 
  Country: None (occurrence: None)
  Receive Date: 20070622
  Receipt Date: 20070613
  Transmission Date: 20071010
  Serious: Yes (Hospitalization, Other)
  Sender: FDA-Public Use
  Company Number: US-PFIZER INC-2007048847

PATIENT
  Sex: Female
  Weight: 70.3 kg

DRUGS (9)
  1. DILANTIN [Suspect]
     Indication: CONVULSION
     Dates: start: 20031101, end: 20040101
  2. DEPAKOTE [Suspect]
  3. ATIVAN [Suspect]
  4. DILAUDID [Suspect]
  5. ZOLOFT [Concomitant]
  6. ALL OTHER THERAPEUTIC PRODUCTS [Concomitant]
  7. MECLIZINE [Concomitant]
     Indication: VERTIGO
  8. PROTONIX [Concomitant]
  9. HEPARIN [Concomitant]
     Indication: THROMBOSIS PROPHYLAXIS
     Dates: start: 20040628

REACTIONS (7)
  - CHEST PAIN [None]
  - CONVULSION [None]
  - FACIAL PALSY [None]
  - FATIGUE [None]
  - MUSCULAR WEAKNESS [None]
  - PERONEAL NERVE PALSY [None]
  - PRURITUS [None]
